FAERS Safety Report 24791377 (Version 1)
Quarter: 2024Q4

REPORT INFORMATION
  Report Type: Spontaneous
  Country: GB (occurrence: GB)
  Receive Date: 20241231
  Receipt Date: 20241231
  Transmission Date: 20250114
  Serious: Yes (Other)
  Sender: NOVO NORDISK
  Company Number: None

PATIENT
  Age: 30 Year
  Sex: Female
  Weight: 129 kg

DRUGS (2)
  1. WEGOVY [Suspect]
     Active Substance: SEMAGLUTIDE
     Indication: Weight control
     Dosage: 0.5 MG, QW
     Dates: start: 20241031
  2. SERTRALINE [Concomitant]
     Active Substance: SERTRALINE HYDROCHLORIDE
     Indication: Depressed mood
     Dosage: UNK
     Dates: start: 20190101

REACTIONS (4)
  - Haematemesis [Recovered/Resolved]
  - Vomiting [Recovering/Resolving]
  - Diarrhoea [Recovering/Resolving]
  - Nausea [Not Recovered/Not Resolved]

NARRATIVE: CASE EVENT DATE: 20241214
